FAERS Safety Report 9820177 (Version 1)
Quarter: 2014Q1

REPORT INFORMATION
  Report Type: Spontaneous
  Country: US (occurrence: None)
  Receive Date: 20140113
  Receipt Date: 20140113
  Transmission Date: 20141002
  Serious: Yes (Other)
  Sender: FDA-Public Use
  Company Number: None

PATIENT
  Age: 65 Year
  Sex: Female
  Weight: 69.4 kg

DRUGS (1)
  1. XARELTO [Suspect]
     Route: 048

REACTIONS (2)
  - Hair disorder [None]
  - Alopecia [None]
